FAERS Safety Report 18753658 (Version 3)
Quarter: 2021Q1

REPORT INFORMATION
  Report Type: Spontaneous
  Country: SE (occurrence: SE)
  Receive Date: 20210118
  Receipt Date: 20210320
  Transmission Date: 20210419
  Serious: Yes (Hospitalization, Other)
  Sender: FDA-Public Use
  Company Number: SE-AMGEN-SWESP2021007997

PATIENT
  Age: 22 Year
  Sex: Female

DRUGS (3)
  1. AIMOVIG [Suspect]
     Active Substance: ERENUMAB-AOOE
     Indication: MIGRAINE
     Dosage: 70 MILLIGRAM, Q4WK  (EVERY FOURTH WEEK)
     Route: 065
     Dates: start: 20200101, end: 20200101
  2. METOPROLOL. [Concomitant]
     Active Substance: METOPROLOL
     Indication: PRODUCT USED FOR UNKNOWN INDICATION
     Dosage: UNK
     Route: 065
  3. SAROTEN [Concomitant]
     Active Substance: AMITRIPTYLINE
     Indication: MIGRAINE PROPHYLAXIS
     Dosage: 25 MILLIGRAM, QD
     Route: 065
     Dates: start: 20190429

REACTIONS (8)
  - Nightmare [Unknown]
  - Confusional state [Recovered/Resolved]
  - Injection site erythema [Recovered/Resolved]
  - Psychological trauma [Unknown]
  - Depressed level of consciousness [Recovered/Resolved]
  - Injection site erythema [Unknown]
  - Abdominal pain [Recovered/Resolved]
  - Constipation [Unknown]

NARRATIVE: CASE EVENT DATE: 20200117
